APPROVED DRUG PRODUCT: PORTIA-28
Active Ingredient: ETHINYL ESTRADIOL; LEVONORGESTREL
Strength: 0.03MG;0.15MG
Dosage Form/Route: TABLET;ORAL-28
Application: A075866 | Product #002 | TE Code: AB
Applicant: BARR LABORATORIES INC
Approved: May 23, 2002 | RLD: No | RS: No | Type: RX